FAERS Safety Report 4642909-X (Version None)
Quarter: 2005Q2

REPORT INFORMATION
  Report Type: 
  Country: None (occurrence: None)
  Receive Date: 20050421
  Receipt Date: 20050411
  Transmission Date: 20051028
  Serious: Yes (Hospitalization, Other)
  Sender: FDA-Public Use
  Company Number: HQWYE961511APR05

PATIENT
  Age: 90 Year
  Sex: Female

DRUGS (5)
  1. ETODOLAC [Suspect]
     Indication: OSTEOARTHRITIS
     Dosage: 400 MG 1 X PER 1 DAY
     Dates: start: 20050114, end: 20050206
  2. SODIUM ALGINATE (SODIUM ALGINATE) [Concomitant]
  3. FERROUS SULFATE TAB [Concomitant]
  4. ASCORBIC ACID [Suspect]
  5. RISEDRONATE (RISEDRONATE) [Concomitant]

REACTIONS (3)
  - ANAEMIA [None]
  - ARTHRALGIA [None]
  - GASTRIC ULCER [None]
